FAERS Safety Report 5249128-7 (Version None)
Quarter: 2007Q1

REPORT INFORMATION
  Report Type: 
  Country: None (occurrence: None)
  Receive Date: 20070222
  Receipt Date: 20070207
  Transmission Date: 20070707
  Serious: Yes (Hospitalization)
  Sender: FDA-Public Use
  Company Number: 2007AL000587

PATIENT
  Age: 41 Year
  Sex: Female
  Weight: 58.0151 kg

DRUGS (5)
  1. RIFAMPIN [Suspect]
     Indication: ANTIBIOTIC PROPHYLAXIS
     Dosage: PO
     Route: 048
     Dates: start: 20041112, end: 20041114
  2. UNKNOWN (TEGASEROO VS PLACEBO) [Concomitant]
  3. ISONIAZID [Concomitant]
  4. ETHAMBUTOL HYDROCHLORIDE [Concomitant]
  5. PYRAZINAMIDE [Concomitant]

REACTIONS (4)
  - ABDOMINAL PAIN UPPER [None]
  - ANOREXIA [None]
  - DEHYDRATION [None]
  - VOMITING [None]
